FAERS Safety Report 5562749-7 (Version None)
Quarter: 2007Q4

REPORT INFORMATION
  Report Type: 
  Country: None (occurrence: None)
  Receive Date: 20071211
  Receipt Date: 20071211
  Transmission Date: 20080405
  Serious: No
  Sender: FDA-Public Use
  Company Number: None

PATIENT
  Age: 40 Year
  Sex: Female
  Weight: 53.5244 kg

DRUGS (1)
  1. EFFEXOR CR [Suspect]
     Indication: DEPRESSION
     Dosage: 225 MG  DAILY  PO
     Route: 048
     Dates: start: 20060607, end: 20070401

REACTIONS (3)
  - HYPOTHYROIDISM [None]
  - LEUKOPENIA [None]
  - TACHYCARDIA [None]
